FAERS Safety Report 8110883-X (Version None)
Quarter: 2012Q1

REPORT INFORMATION
  Report Type: 
  Country: None (occurrence: None)
  Receive Date: 20120203
  Receipt Date: 20120201
  Transmission Date: 20120608
  Serious: Yes (Life-Threatening, Hospitalization, Other)
  Sender: FDA-Public Use
  Company Number: US-JNJFOC-20111208433

PATIENT
  Sex: Female
  Weight: 77.57 kg

DRUGS (4)
  1. ORTHO EVRA [Suspect]
     Indication: CONTRACEPTION
     Route: 062
     Dates: start: 20111215, end: 20111215
  2. ADVAIR DISKUS 100/50 [Concomitant]
     Indication: ASTHMA
     Dosage: 250-50 MCG/DOSE
     Route: 055
     Dates: start: 20110401
  3. PROAIR HFA [Concomitant]
     Indication: ASTHMA
     Dosage: ACTIVATION
     Route: 055
     Dates: start: 20110401
  4. SINGULAIR [Concomitant]
     Indication: ASTHMA
     Route: 065
     Dates: start: 20110401

REACTIONS (1)
  - ANAPHYLACTIC REACTION [None]
